FAERS Safety Report 10840423 (Version 1)
Quarter: 2015Q1

REPORT INFORMATION
  Report Type: Spontaneous
  Country: US (occurrence: None)
  Receive Date: 20150218
  Receipt Date: 20150218
  Transmission Date: 20150721
  Serious: Yes (Death)
  Sender: FDA-Public Use
  Company Number: NSR_01890_2015

PATIENT
  Age: 40 Year
  Sex: Male

DRUGS (2)
  1. GABAPENTIN. [Suspect]
     Active Substance: GABAPENTIN
     Indication: PRODUCT USED FOR UNKNOWN INDICATION
     Dosage: DF ORAL (UNKNOWN UNTIL NOT CONTINUING)
  2. PROPRANOLOL [Suspect]
     Active Substance: PROPRANOLOL\PROPRANOLOL HYDROCHLORIDE
     Indication: PRODUCT USED FOR UNKNOWN INDICATION
     Dosage: DF ORAL (UNKNOWN UNTIL NOT CONTINUING)

REACTIONS (3)
  - Completed suicide [None]
  - Poisoning [None]
  - Exposure via ingestion [None]

NARRATIVE: CASE EVENT DATE: 2013
